FAERS Safety Report 18488867 (Version 7)
Quarter: 2021Q1

REPORT INFORMATION
  Report Type: Spontaneous
  Country: CA (occurrence: CA)
  Receive Date: 20201110
  Receipt Date: 20210329
  Transmission Date: 20210419
  Serious: Yes (Other)
  Sender: FDA-Public Use
  Company Number: CA-CELLTRION INC.-2019CA025263

PATIENT

DRUGS (10)
  1. INFLECTRA [Suspect]
     Active Substance: INFLIXIMAB-DYYB
     Dosage: 400 MG, EVERY 8 WEEKS
     Route: 042
     Dates: start: 20210123
  2. IRON [Concomitant]
     Active Substance: IRON
     Dosage: `
     Route: 065
  3. INFLECTRA [Suspect]
     Active Substance: INFLIXIMAB-DYYB
     Indication: CROHN^S DISEASE
     Dosage: 400 MG, EVERY 8 WEEEKS
     Route: 042
     Dates: start: 20200122
  4. INFLECTRA [Suspect]
     Active Substance: INFLIXIMAB-DYYB
     Dosage: 400 MG, EVERY 8 WEEEKS
     Route: 042
     Dates: start: 20200516
  5. IRON [Concomitant]
     Active Substance: IRON
     Dosage: 2 DF, DAILY
     Route: 065
  6. INFLECTRA [Suspect]
     Active Substance: INFLIXIMAB-DYYB
     Dosage: 400 MG, 4 WEEKS, THEN EVERY 8 WEEKS)
     Route: 042
     Dates: start: 20201127
  7. INFLECTRA [Suspect]
     Active Substance: INFLIXIMAB-DYYB
     Dosage: 400 MG, EVERY 8 WEEEKS
     Route: 042
     Dates: start: 20200723
  8. INFLECTRA [Suspect]
     Active Substance: INFLIXIMAB-DYYB
     Dosage: 400 MG, EVERY 8 WEEEKS
     Route: 042
     Dates: start: 20201102
  9. INFLECTRA [Suspect]
     Active Substance: INFLIXIMAB-DYYB
     Dosage: 400 MG, EVERY 8 WEEEKS
     Route: 042
     Dates: start: 20200318
  10. INFLECTRA [Suspect]
     Active Substance: INFLIXIMAB-DYYB
     Dosage: 400 MG, EVERY 8 WEEEKS
     Route: 042
     Dates: start: 20201102

REACTIONS (8)
  - Condition aggravated [Recovered/Resolved]
  - Blood pressure increased [Unknown]
  - Off label use [Unknown]
  - Intentional product use issue [Unknown]
  - Off label use [Unknown]
  - Inappropriate schedule of product administration [Unknown]
  - Joint injury [Unknown]
  - Arthralgia [Unknown]

NARRATIVE: CASE EVENT DATE: 20200122
